FAERS Safety Report 6492710-X (Version None)
Quarter: 2009Q4

REPORT INFORMATION
  Report Type: 
  Country: None (occurrence: None)
  Receive Date: 20091211
  Receipt Date: 20091211
  Transmission Date: 20100525
  Serious: Yes (Disabling)
  Sender: FDA-Public Use
  Company Number: None

PATIENT
  Age: 50 Year
  Sex: Female
  Weight: 102.0593 kg

DRUGS (1)
  1. DUREZOL [Suspect]
     Indication: KERATOMILEUSIS
     Dosage: 1 DROP PER EYE EVERY HOUR,THEN EVERY 2 HRS, THEN EVERY 4 HRS, BOTH EYE
     Dates: start: 20090501, end: 20090701

REACTIONS (3)
  - INTRAOCULAR PRESSURE INCREASED [None]
  - OPTIC NERVE DISORDER [None]
  - VISUAL FIELD DEFECT [None]
